FAERS Safety Report 22937476 (Version 9)
Quarter: 2024Q1

REPORT INFORMATION
  Report Type: Spontaneous
  Country: PT (occurrence: PT)
  Receive Date: 20230913
  Receipt Date: 20240227
  Transmission Date: 20240409
  Serious: Yes (Other)
  Sender: FDA-Public Use
  Company Number: None

PATIENT
  Age: 47 Year
  Sex: Female
  Weight: 73 kg

DRUGS (26)
  1. HYRIMOZ [Suspect]
     Active Substance: ADALIMUMAB-ADAZ
     Indication: Spondylitis
     Dosage: 40 MG (15/15 DAYS) (STRENGTH-40 MG/0.8 ML),SOLU??O INJET?VEL EM CANETA PR?-CHEIA
     Route: 058
     Dates: start: 20230410, end: 20230508
  2. HYRIMOZ [Suspect]
     Active Substance: ADALIMUMAB-ADAZ
     Dosage: 40 MG (15/15 DAYS) (STRENGTH-40 MG/0.8 ML),SOLU??O INJET?VEL EM CANETA PR?-CHEIA
     Route: 058
     Dates: start: 20230410
  3. DICLOFENAC [Concomitant]
     Active Substance: DICLOFENAC
     Indication: Product used for unknown indication
     Dosage: UNK
     Route: 048
  4. FOLIC ACID [Concomitant]
     Active Substance: FOLIC ACID
     Indication: Product used for unknown indication
     Dosage: UNK,?CIDO F?LICO
     Route: 048
  5. Metex [Concomitant]
     Indication: Product used for unknown indication
     Dosage: 25 MG, QW, STRENGTH: 25 MG/0.5 ML
     Route: 058
  6. Metex [Concomitant]
     Dosage: 25 MG
     Route: 058
  7. Metex [Concomitant]
     Dosage: UNK, STRENGTH: 10 MG
     Route: 065
  8. Metex [Concomitant]
     Dosage: UNK, STRENGTH: 12.5 MG
     Route: 065
  9. Metex [Concomitant]
     Dosage: UNK, STRENGTH: 15 MG
     Route: 065
  10. Metex [Concomitant]
     Dosage: UNK, STRENGTH: 17.5 MG
     Route: 065
  11. Metex [Concomitant]
     Dosage: UNK, STRENGTH: 20 MG
     Route: 065
  12. Metex [Concomitant]
     Dosage: UNK, STRENGTH: 25 MG
     Route: 065
  13. Metex [Concomitant]
     Dosage: UNK, STRENGTH: 27.5 MG
     Route: 065
  14. Metex [Concomitant]
     Dosage: UNK, STRENGTH: 30 MG
     Route: 065
  15. OXAZEPAM [Concomitant]
     Active Substance: OXAZEPAM
     Indication: Product used for unknown indication
     Dosage: 15 MG, QD
     Route: 048
  16. OXAZEPAM [Concomitant]
     Active Substance: OXAZEPAM
     Dosage: UNK, STRENGTH: 50 MG
     Route: 065
  17. INDAPAMIDE\PERINDOPRIL ERBUMINE [Concomitant]
     Active Substance: INDAPAMIDE\PERINDOPRIL ERBUMINE
     Indication: Product used for unknown indication
     Dosage: UNK, STRENGTH: 5 MG + 1.25 MG
     Route: 048
  18. SERTRALINE [Concomitant]
     Active Substance: SERTRALINE HYDROCHLORIDE
     Indication: Product used for unknown indication
     Dosage: 50 MG, QD
     Route: 048
  19. SERTRALINE [Concomitant]
     Active Substance: SERTRALINE HYDROCHLORIDE
     Dosage: UNK, STRENGTH: 100 MG
     Route: 065
  20. SIMVASTATIN [Concomitant]
     Active Substance: SIMVASTATIN
     Indication: Product used for unknown indication
     Dosage: UNK
     Route: 048
  21. SIMVASTATIN [Concomitant]
     Active Substance: SIMVASTATIN
     Dosage: UNK, STRENGTH: 10 MG
     Route: 065
  22. SIMVASTATIN [Concomitant]
     Active Substance: SIMVASTATIN
     Dosage: UNK, STRENGTH: 40 MG
     Route: 065
  23. VOLTAREN [Concomitant]
     Active Substance: DICLOFENAC SODIUM
     Indication: Product used for unknown indication
     Dosage: UNK, 100 + 25
     Route: 065
  24. VOLTAREN [Concomitant]
     Active Substance: DICLOFENAC SODIUM
     Dosage: UNK, STRENGTH: 12.5 MG
     Route: 065
  25. VOLTAREN [Concomitant]
     Active Substance: DICLOFENAC SODIUM
     Dosage: UNK, STRENGTH: 25 MG
     Route: 065
  26. VOLTAREN [Concomitant]
     Active Substance: DICLOFENAC SODIUM
     Dosage: UNK, STRENGTH: 50 MG
     Route: 065

REACTIONS (4)
  - Blister [Not Recovered/Not Resolved]
  - Skin exfoliation [Not Recovered/Not Resolved]
  - Dry skin [Recovering/Resolving]
  - Product substitution issue [Unknown]

NARRATIVE: CASE EVENT DATE: 20230410
